FAERS Safety Report 13559479 (Version 1)
Quarter: 2017Q2

REPORT INFORMATION
  Report Type: Spontaneous
  Country: US (occurrence: US)
  Receive Date: 20170518
  Receipt Date: 20170518
  Transmission Date: 20170830
  Serious: No
  Sender: FDA-Public Use
  Company Number: US-LUPIN PHARMACEUTICALS INC.-E2B_00005646

PATIENT
  Sex: Female

DRUGS (1)
  1. QUETIAPINE TABLETS USP, 200 MG [Suspect]
     Active Substance: QUETIAPINE FUMARATE
     Indication: PRODUCT USED FOR UNKNOWN INDICATION
     Dosage: 2.5 DF,QD,
     Route: 048
     Dates: start: 20160602

REACTIONS (3)
  - Palpitations [Recovered/Resolved]
  - Insomnia [Recovered/Resolved]
  - Chest pain [Recovered/Resolved]

NARRATIVE: CASE EVENT DATE: 20160602
